FAERS Safety Report 6057648-0 (Version None)
Quarter: 2009Q1

REPORT INFORMATION
  Report Type: 
  Country: None (occurrence: None)
  Receive Date: 20090129
  Receipt Date: 20090121
  Transmission Date: 20090719
  Serious: Yes (Other)
  Sender: FDA-Public Use
  Company Number: US-JNJCH-2009001882

PATIENT
  Sex: Female

DRUGS (1)
  1. SUDAFED PE SEVERE COLD CAPLET [Suspect]
     Indication: NASOPHARYNGITIS
     Dosage: TEXT:UNSPECIFIED
     Route: 048

REACTIONS (2)
  - ANGLE CLOSURE GLAUCOMA [None]
  - INTRAOCULAR PRESSURE TEST ABNORMAL [None]
